FAERS Safety Report 7401300 (Version 5)
Quarter: 2014Q1

REPORT INFORMATION
  Report Type: Spontaneous
  Country: US (occurrence: US)
  Receive Date: 20100527
  Receipt Date: 20140122
  Transmission Date: 20141002
  Serious: Yes (Life-Threatening, Hospitalization)
  Sender: FDA-Public Use
  Company Number: US-BAYER-201023237NA

PATIENT
  Age: 39 Year
  Sex: Female
  Weight: 53.97 kg

DRUGS (12)
  1. YAZ [Suspect]
     Indication: PRODUCT USED FOR UNKNOWN INDICATION
     Route: 048
  2. YASMIN [Suspect]
     Indication: CONTRACEPTION
     Dosage: UNKNOWN
     Route: 048
     Dates: start: 200607, end: 200909
  3. YASMIN [Suspect]
     Indication: ACNE
  4. OCELLA [Suspect]
     Indication: CONTRACEPTION
     Dosage: 1 U, QD
     Route: 048
     Dates: start: 200607, end: 200909
  5. LORAZEPAM [Concomitant]
     Indication: ANXIETY
     Dosage: 0.5 MG, UNK
     Route: 048
     Dates: start: 20050715
  6. VICODIN [Concomitant]
     Indication: PAIN
     Dosage: UNK
     Dates: start: 20090702
  7. PROMETHAZINE [Concomitant]
     Indication: NAUSEA
     Dosage: 25 MG, UNK
     Dates: start: 20090701
  8. HYDROCODONE W/APAP [Concomitant]
     Dosage: UNK
     Dates: start: 20090707
  9. AZITHROMYCIN [Concomitant]
     Dosage: UNK
     Dates: start: 200912
  10. MINOCYCLINE [Concomitant]
     Dosage: UNK
     Dates: start: 201010
  11. CLINDAMYCIN [Concomitant]
     Dosage: UNK
     Dates: start: 201010
  12. ACETAMINOPHEN [Concomitant]
     Indication: ANALGESIC THERAPY
     Dosage: UNK
     Dates: start: 2005, end: 200906

REACTIONS (16)
  - Anaemia [None]
  - Cholecystitis acute [None]
  - Cholelithiasis [None]
  - Cholelithiasis [None]
  - Intra-abdominal haematoma [None]
  - Panic attack [None]
  - Abdominal pain [None]
  - Vomiting [None]
  - Pain [None]
  - Nausea [None]
  - Gastritis [None]
  - Abdominal pain upper [None]
  - Nausea [None]
  - Chest pain [None]
  - Pain [Unknown]
  - Headache [Unknown]
